FAERS Safety Report 11761186 (Version 1)
Quarter: 2015Q4

REPORT INFORMATION
  Report Type: Spontaneous
  Country: US (occurrence: US)
  Receive Date: 20151120
  Receipt Date: 20151120
  Transmission Date: 20160304
  Serious: No
  Sender: FDA-Public Use
  Company Number: US-LUNDBECK-DKLU2005846

PATIENT
  Age: 14 Year
  Sex: Female

DRUGS (1)
  1. SABRIL [Suspect]
     Active Substance: VIGABATRIN
     Indication: EPILEPSY
     Route: 048
     Dates: start: 201505

REACTIONS (5)
  - Mood swings [Unknown]
  - Anxiety [Unknown]
  - Decreased appetite [Unknown]
  - Agitation [Unknown]
  - Insomnia [Unknown]
